FAERS Safety Report 25486148 (Version 1)
Quarter: 2025Q2

REPORT INFORMATION
  Report Type: Spontaneous
  Country: CN (occurrence: CN)
  Receive Date: 20250626
  Receipt Date: 20250626
  Transmission Date: 20250717
  Serious: Yes (Death, Life-Threatening)
  Sender: JOHNSON AND JOHNSON
  Company Number: CN-JNJFOC-20250633147

PATIENT
  Age: 84 Year
  Sex: Male
  Weight: 60 kg

DRUGS (9)
  1. RIVAROXABAN [Suspect]
     Active Substance: RIVAROXABAN
     Indication: Embolism venous
     Dosage: 10 MG, QD
     Route: 048
     Dates: start: 20230926, end: 20231013
  2. HERBALS\PANAX NOTOGINSENG ROOT EXTRACT [Suspect]
     Active Substance: HERBALS\PANAX NOTOGINSENG ROOT EXTRACT
     Indication: Product used for unknown indication
     Dosage: 150 MG, QD
     Route: 041
     Dates: start: 20231002, end: 20231013
  3. IMRECOXIB [Suspect]
     Active Substance: IMRECOXIB
     Indication: Analgesic therapy
     Dosage: 0.1 G, BID
     Route: 048
     Dates: start: 20231005, end: 20231013
  4. CEFOTAXIME SODIUM [Concomitant]
     Active Substance: CEFOTAXIME SODIUM
     Indication: Infection prophylaxis
     Dosage: 2 G, BID
     Route: 041
     Dates: start: 20230925, end: 20231002
  5. Shang ke jie gu [Concomitant]
     Indication: Swelling
     Dosage: 4 DF, TID
     Route: 048
     Dates: start: 20230926, end: 20231011
  6. Shang ke jie gu [Concomitant]
     Indication: Analgesic therapy
  7. Aescine sodium [Concomitant]
     Indication: Product used for unknown indication
     Dosage: 15 MG, QD
     Route: 041
     Dates: start: 20230925, end: 20231007
  8. POLYPEPTIDES [Concomitant]
     Active Substance: POLYPEPTIDES
     Indication: Product used for unknown indication
     Dosage: 24 MG, QD
     Route: 041
     Dates: start: 20230928, end: 20231013
  9. ACETAMINOPHEN\TRAMADOL HYDROCHLORIDE [Concomitant]
     Active Substance: ACETAMINOPHEN\TRAMADOL HYDROCHLORIDE
     Indication: Analgesic therapy
     Dosage: 1 DF, BID
     Route: 048
     Dates: start: 20231009, end: 20231013

REACTIONS (7)
  - Cerebral haemorrhage [Fatal]
  - Labelled drug-drug interaction issue [Fatal]
  - Inappropriate schedule of product administration [Unknown]
  - Underdose [Unknown]
  - Product prescribing issue [Unknown]
  - Prescribed underdose [Unknown]
  - Faecal occult blood positive [Unknown]

NARRATIVE: CASE EVENT DATE: 20230926
